FAERS Safety Report 5719577-9 (Version None)
Quarter: 2008Q2

REPORT INFORMATION
  Report Type: 
  Country: None (occurrence: None)
  Receive Date: 20080428
  Receipt Date: 20080421
  Transmission Date: 20081010
  Serious: Yes (Other)
  Sender: FDA-Public Use
  Company Number: A0725114A

PATIENT
  Age: 69 Year
  Sex: Female

DRUGS (7)
  1. LETAIRIS [Suspect]
     Dosage: 5MG PER DAY
     Route: 048
     Dates: start: 20080222, end: 20080411
  2. ASPIRIN [Suspect]
     Dosage: 81MG PER DAY
     Route: 048
  3. TOPROL-XL [Concomitant]
     Dosage: 50MG PER DAY
  4. HYDROCHLOROTHIAZIDE [Concomitant]
     Indication: DRUG USE FOR UNKNOWN INDICATION
     Dosage: 12.5MG PER DAY
     Route: 048
  5. VITAMIN B-12 [Concomitant]
     Dosage: 100MCG PER DAY
     Route: 048
  6. VITAMIN B6 [Concomitant]
     Dosage: 50MG TWICE PER DAY
     Route: 048
  7. FOLIC ACID [Concomitant]
     Dosage: 1MG TWICE PER DAY
     Route: 048

REACTIONS (5)
  - FAECES DISCOLOURED [None]
  - FATIGUE [None]
  - HAEMATOCRIT DECREASED [None]
  - HAEMOGLOBIN DECREASED [None]
  - HEPATIC ENZYME INCREASED [None]
